FAERS Safety Report 7901062-7 (Version None)
Quarter: 2011Q4

REPORT INFORMATION
  Report Type: 
  Country: None (occurrence: None)
  Receive Date: 20111108
  Receipt Date: 20111101
  Transmission Date: 20120403
  Serious: Yes (Death)
  Sender: FDA-Public Use
  Company Number: JP-ELI_LILLY_AND_COMPANY-JP201111000009

PATIENT
  Sex: Female
  Weight: 58 kg

DRUGS (1)
  1. GEMZAR [Suspect]
     Indication: OVARIAN EPITHELIAL CANCER
     Dosage: 1000 MG, UNK
     Route: 042
     Dates: start: 20110311

REACTIONS (4)
  - URINARY TRACT INFECTION [None]
  - PNEUMONIA [None]
  - MYELODYSPLASTIC SYNDROME [None]
  - HERPES ZOSTER [None]
